FAERS Safety Report 12278103 (Version 5)
Quarter: 2024Q4

REPORT INFORMATION
  Report Type: Report from Study
  Country: DE (occurrence: DE)
  Receive Date: 20160418
  Receipt Date: 20241231
  Transmission Date: 20250115
  Serious: Yes (Other)
  Sender: BIOGEN
  Company Number: DE-BIOGENIDEC-2015BI031979

PATIENT
  Age: 34 Year
  Sex: Female
  Weight: 55 kg

DRUGS (9)
  1. TECFIDERA [Suspect]
     Active Substance: DIMETHYL FUMARATE
     Indication: Multiple sclerosis
     Dosage: MAINTENANCE DOSE
     Route: 050
     Dates: start: 20140917, end: 20150105
  2. TECFIDERA [Suspect]
     Active Substance: DIMETHYL FUMARATE
     Route: 050
     Dates: start: 20151207
  3. SELENIUM [Concomitant]
     Active Substance: SELENIUM
     Indication: Prophylaxis
     Route: 050
     Dates: start: 201505
  4. COBALAMIN [Concomitant]
     Active Substance: COBALAMIN
     Indication: Prophylaxis
     Route: 050
     Dates: start: 201410
  5. VITAMIN D3 [Concomitant]
     Active Substance: CHOLECALCIFEROL
     Indication: Prophylaxis
     Route: 050
     Dates: start: 201410
  6. FOLIC ACID [Concomitant]
     Active Substance: FOLIC ACID
     Indication: Contraception
     Route: 050
     Dates: start: 201410
  7. COPAXONE [Concomitant]
     Active Substance: GLATIRAMER ACETATE
     Indication: Product used for unknown indication
     Route: 050
     Dates: end: 201501
  8. FEMIBION [Concomitant]
     Indication: Maternal exposure during pregnancy
     Route: 050
     Dates: start: 20150115
  9. MAGNESIUM [Concomitant]
     Active Substance: MAGNESIUM
     Indication: Reproductive system disorder prophylaxis
     Route: 050
     Dates: start: 20150115

REACTIONS (2)
  - Threatened uterine rupture [Recovered/Resolved]
  - Maternal exposure during pregnancy [Recovered/Resolved]

NARRATIVE: CASE EVENT DATE: 20141208
